FAERS Safety Report 19873804 (Version 5)
Quarter: 2022Q4

REPORT INFORMATION
  Report Type: Spontaneous
  Country: ES (occurrence: ES)
  Receive Date: 20210922
  Receipt Date: 20221123
  Transmission Date: 20230112
  Serious: Yes (Hospitalization)
  Sender: FDA-Public Use
  Company Number: ES-PFM-2021-09158

PATIENT
  Age: 83 Year
  Sex: Male

DRUGS (14)
  1. BRAFTOVI [Suspect]
     Active Substance: ENCORAFENIB
     Indication: BRAF gene mutation
     Dosage: 450 MG, QD (1/DAY)
     Route: 066
     Dates: start: 20201015, end: 20210713
  2. BRAFTOVI [Suspect]
     Active Substance: ENCORAFENIB
     Dosage: UNK
     Route: 065
     Dates: start: 20210728
  3. MEKTOVI [Suspect]
     Active Substance: BINIMETINIB
     Indication: BRAF gene mutation
     Dosage: 45 MG, QOD (1/2DAYS)
     Route: 065
     Dates: start: 20201015, end: 20210713
  4. MEKTOVI [Suspect]
     Active Substance: BINIMETINIB
     Dosage: UNK
     Route: 065
     Dates: start: 20210728
  5. DEXAMETHASONE [Concomitant]
     Active Substance: DEXAMETHASONE
     Dosage: 2 MG, QD (1/DAY)
     Route: 065
  6. SILODOSIN [Concomitant]
     Active Substance: SILODOSIN
     Dosage: 8 MG, QD (1/DAY)
     Route: 065
  7. PREGABALIN [Concomitant]
     Active Substance: PREGABALIN
     Dosage: 75 MG, BID (2/DAY)
     Route: 065
  8. OMEPRAZOL A [Concomitant]
     Dosage: 20 MG, QD (1/DAY)
     Route: 065
  9. TAPENTADOL [Concomitant]
     Active Substance: TAPENTADOL
     Dosage: 25 MG, TID (3/DAY)
     Route: 065
  10. ASPARTIC ACID\POTASSIUM ASCORBATE [Concomitant]
     Active Substance: ASPARTIC ACID\POTASSIUM ASCORBATE
     Dosage: UNK
     Route: 065
  11. FENTANYL CITRATE [Concomitant]
     Active Substance: FENTANYL CITRATE
     Indication: Pain
     Dosage: 100 ?G, PRN
     Route: 065
  12. METAMIZOL [Concomitant]
     Active Substance: METAMIZOLE SODIUM
     Dosage: UNK
     Route: 065
  13. ASPIRIN [Concomitant]
     Active Substance: ASPIRIN
     Dosage: 300 MG, QD (1/DAY)
     Route: 065
  14. SIMVASTATIN [Concomitant]
     Active Substance: SIMVASTATIN
     Dosage: 10 MG, QD (1/DAY)
     Route: 065

REACTIONS (1)
  - Colitis [Recovered/Resolved]

NARRATIVE: CASE EVENT DATE: 20210709
